FAERS Safety Report 11753869 (Version 1)
Quarter: 2015Q4

REPORT INFORMATION
  Report Type: Spontaneous
  Country: US (occurrence: None)
  Receive Date: 20151118
  Receipt Date: 20151118
  Transmission Date: 20160304
  Serious: Yes (Life-Threatening, Hospitalization)
  Sender: FDA-Public Use
  Company Number: None

PATIENT
  Age: 65 Year
  Sex: Male
  Weight: 99.1 kg

DRUGS (1)
  1. PERFLUTREN [Suspect]
     Active Substance: PERFLUTREN
     Indication: ANGIOEDEMA
     Route: 042
     Dates: start: 20151027, end: 20151027

REACTIONS (5)
  - Angioedema [None]
  - Paraesthesia [None]
  - Lower respiratory tract congestion [None]
  - Hypoaesthesia oral [None]
  - Chest discomfort [None]

NARRATIVE: CASE EVENT DATE: 20151027
